FAERS Safety Report 8457141-1 (Version None)
Quarter: 2012Q2

REPORT INFORMATION
  Report Type: 
  Country: None (occurrence: None)
  Receive Date: 20120621
  Receipt Date: 20100511
  Transmission Date: 20120825
  Serious: Yes (Death)
  Sender: FDA-Public Use
  Company Number: PHHY2010IT094205

PATIENT

DRUGS (10)
  1. GANCICLOVIR [Concomitant]
     Indication: ANTIVIRAL PROPHYLAXIS
     Dosage: 5 MG/KG, UNK
     Route: 042
  2. PREDNISONE TAB [Concomitant]
     Dosage: 4 MG, UNK
  3. PREDNISONE TAB [Concomitant]
     Dosage: 12 MG, UNK
  4. PREDNISONE TAB [Concomitant]
     Dosage: 8 MG, UNK
  5. PREDNISONE TAB [Concomitant]
     Indication: LIVER TRANSPLANT
     Dosage: 20 MG, UNK
  6. PREDNISONE TAB [Concomitant]
     Dosage: 16 MG, UNK
  7. EVEROLIMUS [Suspect]
     Indication: LIVER TRANSPLANT
     Dosage: 2 MG/KG, DAILY
  8. NEORAL [Suspect]
     Indication: LIVER TRANSPLANT
     Dosage: 2 MG/KG, DAILY
  9. SIMULECT [Suspect]
     Indication: LIVER TRANSPLANT
     Dosage: 20 MG, UNK
     Route: 042
  10. METHYLPREDNISOLONE [Concomitant]
     Indication: LIVER TRANSPLANT
     Dosage: 500 MG, UNK
     Route: 042

REACTIONS (1)
  - PULMONARY EMBOLISM [None]
